FAERS Safety Report 14466128 (Version 1)
Quarter: 2018Q1

REPORT INFORMATION
  Report Type: Report from Study
  Country: BE (occurrence: BE)
  Receive Date: 20180131
  Receipt Date: 20180131
  Transmission Date: 20180509
  Serious: Yes (Other)
  Sender: FDA-Public Use
  Company Number: BE-CIPLA LTD.-2018BE02521

PATIENT

DRUGS (2)
  1. CARBOPLATIN. [Suspect]
     Active Substance: CARBOPLATIN
     Indication: CERVIX CARCINOMA STAGE II
     Dosage: AUC 2.7 WEEKLY INFUSIONS OR (AUC4) ON DAYS 1 AND 8, EVERY 3WEEKS
     Route: 065
  2. PACLITAXEL. [Suspect]
     Active Substance: PACLITAXEL
     Indication: CERVIX CARCINOMA STAGE II
     Dosage: 60 MG/M2  WEEKLY OR 90 MG/M2 ON DAYS 1 AND 8, EVERY 3WEEKS
     Route: 065

REACTIONS (2)
  - Malignant neoplasm progression [Unknown]
  - Cervix carcinoma recurrent [Unknown]
